FAERS Safety Report 5414189-9 (Version None)
Quarter: 2007Q3

REPORT INFORMATION
  Report Type: 
  Country: None (occurrence: None)
  Receive Date: 20070814
  Receipt Date: 20070802
  Transmission Date: 20080115
  Serious: Yes (Other)
  Sender: FDA-Public Use
  Company Number: JP-PFIZER INC-2007055138

PATIENT
  Sex: Male

DRUGS (8)
  1. AZULFIDINE EN-TABS [Suspect]
     Indication: RHEUMATOID ARTHRITIS
     Dosage: TEXT:1 TABLETS
     Route: 048
     Dates: start: 20070417, end: 20070625
  2. HYPEN [Concomitant]
     Route: 048
     Dates: start: 20070417, end: 20070625
  3. MUCOSTA [Concomitant]
     Route: 048
     Dates: start: 20070417, end: 20070625
  4. THEOPHYLLINE [Concomitant]
  5. MEPTIN [Concomitant]
  6. SPELEAR [Concomitant]
  7. LIVALO [Concomitant]
  8. FLUTIDE [Concomitant]

REACTIONS (2)
  - DERMATITIS EXFOLIATIVE [None]
  - DRUG ERUPTION [None]
